FAERS Safety Report 16887056 (Version 1)
Quarter: 2019Q4

REPORT INFORMATION
  Report Type: Report from Study
  Country: US (occurrence: US)
  Receive Date: 20191004
  Receipt Date: 20191004
  Transmission Date: 20200122
  Serious: Yes (Hospitalization)
  Sender: FDA-Public Use
  Company Number: US-GILEAD-2019-0431613

PATIENT
  Age: 55 Year
  Sex: Male

DRUGS (30)
  1. ADEMPAS [Concomitant]
     Active Substance: RIOCIGUAT
  2. AZATHIOPRINE. [Concomitant]
     Active Substance: AZATHIOPRINE
  3. ESCITALOPRAM [Concomitant]
     Active Substance: ESCITALOPRAM OXALATE
  4. NITROGLYCERIN. [Concomitant]
     Active Substance: NITROGLYCERIN
  5. ALBUTEROL [SALBUTAMOL SULFATE] [Concomitant]
     Active Substance: ALBUTEROL SULFATE
  6. ALPRAZOLAM. [Concomitant]
     Active Substance: ALPRAZOLAM
  7. DULERA [Concomitant]
     Active Substance: FORMOTEROL FUMARATE DIHYDRATE\MOMETASONE FUROATE
  8. FLUTICASONE. [Concomitant]
     Active Substance: FLUTICASONE
  9. PROAIR [FLUTICASONE PROPIONATE] [Concomitant]
     Active Substance: FLUTICASONE PROPIONATE
  10. ALENDRONATE [Concomitant]
     Active Substance: ALENDRONATE SODIUM
  11. LANSOPRAZOLE. [Concomitant]
     Active Substance: LANSOPRAZOLE
  12. TYVASO [Concomitant]
     Active Substance: TREPROSTINIL
  13. REMODULIN [Concomitant]
     Active Substance: TREPROSTINIL
  14. AMBRISENTAN [Suspect]
     Active Substance: AMBRISENTAN
     Indication: PULMONARY ARTERIAL HYPERTENSION
     Dosage: 10 MG, QD
     Route: 065
     Dates: start: 20160503
  15. BACLOFEN. [Concomitant]
     Active Substance: BACLOFEN
  16. CHLORTHALIDONE. [Concomitant]
     Active Substance: CHLORTHALIDONE
  17. METHOTREXATE. [Concomitant]
     Active Substance: METHOTREXATE
  18. PANTOPRAZOLE [Concomitant]
     Active Substance: PANTOPRAZOLE
  19. CLONIDINE. [Concomitant]
     Active Substance: CLONIDINE
  20. OYSTER SHELL [Concomitant]
     Active Substance: OSTREA EDULIS SHELL
  21. POLYETHYLENE GLYCOL [Concomitant]
     Active Substance: POLYETHYLENE GLYCOLS
  22. AMLODIPINE [Concomitant]
     Active Substance: AMLODIPINE BESYLATE
  23. DOCUSATE SOD [Concomitant]
  24. FUROSEMIDE. [Concomitant]
     Active Substance: FUROSEMIDE
  25. LIDOCAINE. [Concomitant]
     Active Substance: LIDOCAINE
  26. LOSARTAN POTASSSIUM [Concomitant]
  27. LYRICA [Concomitant]
     Active Substance: PREGABALIN
  28. ONDANSETRON [Concomitant]
     Active Substance: ONDANSETRON
  29. MAGNESIUM [Concomitant]
     Active Substance: MAGNESIUM
  30. PREDNISONE. [Concomitant]
     Active Substance: PREDNISONE

REACTIONS (1)
  - Catheterisation cardiac [Not Recovered/Not Resolved]
